FAERS Safety Report 7570337-6 (Version None)
Quarter: 2011Q2

REPORT INFORMATION
  Report Type: 
  Country: None (occurrence: None)
  Receive Date: 20110624
  Receipt Date: 20110610
  Transmission Date: 20111010
  Serious: Yes (Hospitalization)
  Sender: FDA-Public Use
  Company Number: GB-CELGENEUS-167-AB007-11050848

PATIENT
  Sex: Male
  Weight: 93 kg

DRUGS (3)
  1. ABRAXANE [Suspect]
     Indication: METASTATIC MALIGNANT MELANOMA
     Dosage: 325 MILLIGRAM
     Route: 051
     Dates: start: 20110331, end: 20110427
  2. ABRAXANE [Suspect]
     Dosage: 325 MILLIGRAM
     Route: 051
     Dates: end: 20110615
  3. ANTIBIOTICS [Concomitant]
     Route: 051
     Dates: start: 20110612

REACTIONS (4)
  - SYNCOPE [None]
  - CELLULITIS [None]
  - EXTRAVASATION [None]
  - SEPSIS [None]
